FAERS Safety Report 14573043 (Version 2)
Quarter: 2018Q1

REPORT INFORMATION
  Report Type: Spontaneous
  Country: CN (occurrence: CN)
  Receive Date: 20180226
  Receipt Date: 20180305
  Transmission Date: 20180509
  Serious: Yes (Hospitalization, Other)
  Sender: FDA-Public Use
  Company Number: CN-SA-2018SA040081

PATIENT
  Age: 65 Year
  Sex: Female

DRUGS (12)
  1. METHOTREXATE. [Interacting]
     Active Substance: METHOTREXATE
     Indication: RHEUMATOID ARTHRITIS
     Dosage: LOW-DOSE
     Route: 048
  2. CELECOXIB. [Interacting]
     Active Substance: CELECOXIB
     Indication: RHEUMATOID ARTHRITIS
     Route: 048
  3. PANTOPRAZOLE [Concomitant]
     Active Substance: PANTOPRAZOLE
     Indication: GASTRITIS PROPHYLAXIS
     Route: 065
  4. TEPRENONE [Concomitant]
     Active Substance: TEPRENONE
     Indication: GASTRITIS PROPHYLAXIS
     Route: 048
  5. VITAMIN D3 [Concomitant]
     Active Substance: CHOLECALCIFEROL
     Indication: OSTEOPOROSIS
     Dosage: 600 MG + 125 IU/DAY
     Route: 065
  6. PANTOPRAZOLE [Concomitant]
     Active Substance: PANTOPRAZOLE
     Indication: ANTACID THERAPY
     Route: 048
  7. METHYLPREDNISOLONE. [Concomitant]
     Active Substance: METHYLPREDNISOLONE
     Indication: RHEUMATOID ARTHRITIS
     Route: 048
  8. TEPRENONE [Concomitant]
     Active Substance: TEPRENONE
     Indication: ANTACID THERAPY
     Route: 048
  9. PANTOPRAZOLE [Concomitant]
     Active Substance: PANTOPRAZOLE
     Indication: GASTRITIS PROPHYLAXIS
     Route: 048
  10. PANTOPRAZOLE [Concomitant]
     Active Substance: PANTOPRAZOLE
     Indication: ANTACID THERAPY
     Route: 065
  11. LEFLUNOMIDE. [Suspect]
     Active Substance: LEFLUNOMIDE
     Indication: RHEUMATOID ARTHRITIS
     Route: 048
  12. CALCIUM CARBONATE. [Concomitant]
     Active Substance: CALCIUM CARBONATE
     Indication: OSTEOPOROSIS
     Dosage: COLECALCIFEROL 600 MG, CALCIUM 125 IU
     Route: 048

REACTIONS (30)
  - Occult blood positive [Recovered/Resolved]
  - Thrombocytopenia [Recovered/Resolved]
  - Lung infection [Recovered/Resolved]
  - Cough [Recovered/Resolved]
  - Red blood cell sedimentation rate increased [Recovered/Resolved]
  - Murphy^s sign positive [Recovered/Resolved]
  - Abdominal tenderness [Recovered/Resolved]
  - Bone marrow failure [Recovered/Resolved]
  - Platelet count decreased [Recovered/Resolved]
  - Blood creatinine increased [Recovered/Resolved]
  - Oropharyngeal pain [Recovered/Resolved]
  - Aspartate aminotransferase increased [Recovered/Resolved]
  - Alanine aminotransferase increased [Recovered/Resolved]
  - Agranulocytosis [Recovered/Resolved]
  - Pneumonitis [Recovering/Resolving]
  - Haemoptysis [Recovered/Resolved]
  - Haemoglobin decreased [Recovered/Resolved]
  - C-reactive protein increased [Recovered/Resolved]
  - Mouth ulceration [Recovered/Resolved]
  - Gastrointestinal haemorrhage [Recovered/Resolved]
  - Blood uric acid increased [Recovered/Resolved]
  - Blood urea increased [Recovered/Resolved]
  - Tonsillitis [Recovered/Resolved]
  - Cholecystitis acute [Recovered/Resolved]
  - Nephropathy toxic [Recovered/Resolved]
  - Hepatotoxicity [Recovered/Resolved]
  - Drug interaction [Recovered/Resolved]
  - Hyperpyrexia [Recovered/Resolved]
  - White blood cell count decreased [Recovered/Resolved]
  - Neutrophil count decreased [Recovered/Resolved]
